FAERS Safety Report 8615330-7 (Version None)
Quarter: 2012Q3

REPORT INFORMATION
  Report Type: 
  Country: None (occurrence: None)
  Receive Date: 20120823
  Receipt Date: 20120814
  Transmission Date: 20120928
  Serious: Yes (Hospitalization)
  Sender: FDA-Public Use
  Company Number: ZA-ABBOTT-12P-143-0968575-00

PATIENT
  Sex: Male
  Weight: 110 kg

DRUGS (18)
  1. FOLIC ACID [Concomitant]
     Indication: VITAMIN SUPPLEMENTATION
     Route: 048
  2. PREXUM [Concomitant]
     Indication: HYPERTENSION
     Route: 047
  3. INTERFLORA [Concomitant]
     Indication: CROHN'S DISEASE
     Route: 048
  4. MEDROL [Concomitant]
     Indication: CROHN'S DISEASE
     Route: 048
  5. ZOLPIDEM [Concomitant]
     Indication: INSOMNIA
     Route: 048
  6. SULFASALAZINE [Concomitant]
     Indication: CROHN'S DISEASE
     Route: 048
  7. METHOTREXATE [Concomitant]
     Indication: CROHN'S DISEASE
     Dosage: WEEKLY
     Route: 058
  8. AZOR [Concomitant]
     Indication: ANXIETY
     Route: 048
  9. HUMIRA [Suspect]
     Indication: CROHN'S DISEASE
     Dosage: WK0: 160MG WK2: 80MG WK4: 40MG EOW
     Route: 058
     Dates: start: 20120727
  10. FLAGYL [Concomitant]
     Indication: INFECTION PROPHYLAXIS
     Route: 048
     Dates: start: 20120717
  11. ORPIC [Concomitant]
     Indication: INFECTION PROPHYLAXIS
     Route: 048
  12. CHELA-FER [Concomitant]
     Indication: MINERAL SUPPLEMENTATION
     Route: 048
  13. LEXAMIL [Concomitant]
     Indication: PRODUCT USED FOR UNKNOWN INDICATION
     Route: 048
  14. ZIAK [Concomitant]
     Indication: HYPERTENSION
     Dosage: 5/6.25 MG DAILY
     Route: 048
  15. OMEZ [Concomitant]
     Indication: PROPHYLAXIS AGAINST GASTROINTESTINAL ULCER
     Route: 048
  16. LIPOGEN [Concomitant]
     Indication: BLOOD CHOLESTEROL INCREASED
     Route: 048
  17. CALCIFEROL [Concomitant]
     Indication: VITAMIN SUPPLEMENTATION
     Dosage: WEEKLY
     Route: 048
  18. TRAMADOL HYDROCHLORIDE/ACETAMINOPHEN [Concomitant]
     Indication: PAIN
     Route: 048

REACTIONS (1)
  - SKIN ULCER [None]
